FAERS Safety Report 11339985 (Version 2)
Quarter: 2020Q1

REPORT INFORMATION
  Report Type: Spontaneous
  Country: US (occurrence: US)
  Receive Date: 20150805
  Receipt Date: 20200131
  Transmission Date: 20200409
  Serious: No
  Sender: FDA-Public Use
  Company Number: US-TEVA-583022USA

PATIENT
  Age: 33 Year
  Sex: Female

DRUGS (1)
  1. COPAXONE [Suspect]
     Active Substance: GLATIRAMER ACETATE
     Indication: MULTIPLE SCLEROSIS
     Dates: start: 20141209, end: 20150625

REACTIONS (5)
  - Dyspnoea [Unknown]
  - Injection site reaction [Unknown]
  - Heart rate increased [Unknown]
  - Urticaria [Unknown]
  - Flushing [Unknown]

NARRATIVE: CASE EVENT DATE: 20150625
